FAERS Safety Report 5485259-4 (Version None)
Quarter: 2007Q4

REPORT INFORMATION
  Report Type: 
  Country: None (occurrence: None)
  Receive Date: 20071010
  Receipt Date: 20071010
  Transmission Date: 20080405
  Serious: Yes (Other)
  Sender: FDA-Public Use
  Company Number: None

PATIENT
  Age: 67 Year
  Sex: Female
  Weight: 80.7403 kg

DRUGS (4)
  1. METHOTREXATE [Suspect]
     Indication: RHEUMATOID ARTHRITIS
     Dosage: 10MG  ONCE A WEEK  SQ
     Route: 058
     Dates: start: 20070910, end: 20071001
  2. AVALIDE [Concomitant]
  3. SYNTHROID [Concomitant]
  4. AVAPRO [Concomitant]

REACTIONS (4)
  - INDURATION [None]
  - NAUSEA [None]
  - PAIN [None]
  - SKIN DISCOLOURATION [None]
